FAERS Safety Report 22062063 (Version 3)
Quarter: 2024Q4

REPORT INFORMATION
  Report Type: Spontaneous
  Country: HU (occurrence: HU)
  Receive Date: 20230304
  Receipt Date: 20241230
  Transmission Date: 20250115
  Serious: Yes (Other)
  Sender: NOVARTIS
  Company Number: HU-002147023-NVSC2023HU049963

PATIENT
  Age: 41 Year
  Sex: Male

DRUGS (10)
  1. ELTROMBOPAG OLAMINE [Suspect]
     Active Substance: ELTROMBOPAG OLAMINE
     Indication: Aplastic anaemia
     Dosage: UNK
     Route: 065
     Dates: start: 20221107, end: 20221110
  2. ELTROMBOPAG OLAMINE [Suspect]
     Active Substance: ELTROMBOPAG OLAMINE
     Dosage: UNK
     Route: 065
     Dates: start: 2022
  3. ELTROMBOPAG OLAMINE [Suspect]
     Active Substance: ELTROMBOPAG OLAMINE
     Dosage: 150 MG
     Route: 065
     Dates: start: 20221108
  4. CYCLOSPORINE [Suspect]
     Active Substance: CYCLOSPORINE
     Indication: Aplastic anaemia
     Dosage: UNK
     Route: 065
     Dates: start: 20221107, end: 20221110
  5. CYCLOSPORINE [Suspect]
     Active Substance: CYCLOSPORINE
     Dosage: UNK
     Route: 065
     Dates: start: 2022
  6. THYMOGAM [Concomitant]
     Active Substance: EQUINE THYMOCYTE IMMUNE GLOBULIN
     Indication: Aplastic anaemia
     Dosage: UNK
     Route: 065
     Dates: start: 20221107
  7. METHYLPREDNISOLONE [Concomitant]
     Active Substance: METHYLPREDNISOLONE
     Indication: Aplastic anaemia
     Dosage: UNK
     Route: 065
     Dates: start: 20221107
  8. ACYCLOVIR [Concomitant]
     Active Substance: ACYCLOVIR
     Indication: Product used for unknown indication
     Dosage: UNK
     Route: 065
  9. SULFAMETHOXAZOLE\TRIMETHOPRIM [Concomitant]
     Active Substance: SULFAMETHOXAZOLE\TRIMETHOPRIM
     Indication: Product used for unknown indication
     Dosage: UNK
     Route: 065
  10. PANTOPRAZOLE SODIUM [Concomitant]
     Active Substance: PANTOPRAZOLE SODIUM
     Indication: Product used for unknown indication
     Dosage: UNK
     Route: 065

REACTIONS (13)
  - Platelet count decreased [Recovering/Resolving]
  - Acute kidney injury [Recovering/Resolving]
  - Pneumonia [Unknown]
  - Guillain-Barre syndrome [Unknown]
  - Hemiparesis [Unknown]
  - Haptoglobin decreased [Unknown]
  - Hyperbilirubinaemia [Recovered/Resolved]
  - Peripheral nerve paresis [Unknown]
  - Dysphonia [Unknown]
  - Neutrophil count decreased [Recovered/Resolved]
  - Haematocrit decreased [Unknown]
  - Blood lactate dehydrogenase increased [Unknown]
  - Rash [Unknown]

NARRATIVE: CASE EVENT DATE: 20221110
